FAERS Safety Report 6854606-0 (Version None)
Quarter: 2010Q3

REPORT INFORMATION
  Report Type: 
  Country: None (occurrence: None)
  Receive Date: 20100717
  Receipt Date: 20080216
  Transmission Date: 20110219
  Serious: No
  Sender: FDA-Public Use
  Company Number: US-PFIZER INC-2007107354

PATIENT
  Sex: Female
  Weight: 58.1 kg

DRUGS (7)
  1. CHANTIX [Suspect]
     Indication: SMOKING CESSATION THERAPY
     Route: 048
     Dates: start: 20071109, end: 20071217
  2. LIPITOR [Concomitant]
  3. ALPRAZOLAM [Concomitant]
     Indication: ANXIETY
  4. FISH OIL [Concomitant]
  5. FLONASE [Concomitant]
  6. MULTI-VITAMINS [Concomitant]
  7. ZANTAC [Concomitant]

REACTIONS (8)
  - ABDOMINAL DISCOMFORT [None]
  - ABDOMINAL PAIN UPPER [None]
  - ABNORMAL DREAMS [None]
  - APTYALISM [None]
  - DRY MOUTH [None]
  - GALLBLADDER PAIN [None]
  - INSOMNIA [None]
  - POOR QUALITY SLEEP [None]
